FAERS Safety Report 16364139 (Version 2)
Quarter: 2019Q2

REPORT INFORMATION
  Report Type: Report from Study
  Country: IL (occurrence: IL)
  Receive Date: 20190528
  Receipt Date: 20190603
  Transmission Date: 20190711
  Serious: Yes (Hospitalization, Other)
  Sender: FDA-Public Use
  Company Number: IL-SHIRE-IL201902237

PATIENT

DRUGS (1)
  1. VELAGLUCERASE ALFA [Suspect]
     Active Substance: VELAGLUCERASE ALFA
     Indication: GAUCHER^S DISEASE
     Dosage: 2 / 3 VIALS, 1X/2WKS
     Dates: start: 20140406

REACTIONS (4)
  - Upper limb fracture [Unknown]
  - Postoperative wound infection [Unknown]
  - Fall [Unknown]
  - Procedural pain [Unknown]

NARRATIVE: CASE EVENT DATE: 20190116
